FAERS Safety Report 24616794 (Version 1)
Quarter: 2024Q4

REPORT INFORMATION
  Report Type: Spontaneous
  Country: US (occurrence: US)
  Receive Date: 20241114
  Receipt Date: 20241114
  Transmission Date: 20250114
  Serious: Yes (Other)
  Sender: OTSUKA
  Company Number: US-OTSUKA-2024_003815

PATIENT
  Age: 72 Year
  Sex: Male

DRUGS (1)
  1. NUEDEXTA [Suspect]
     Active Substance: DEXTROMETHORPHAN HYDROBROMIDE\QUINIDINE SULFATE
     Indication: Affect lability
     Dosage: UNK (REGULAR DOSE), BID
     Route: 065
     Dates: start: 202109

REACTIONS (1)
  - Haemolytic anaemia [Not Recovered/Not Resolved]
